FAERS Safety Report 9493868 (Version 5)
Quarter: 2015Q1

REPORT INFORMATION
  Report Type: Spontaneous
  Country: FR (occurrence: FR)
  Receive Date: 20130902
  Receipt Date: 20150323
  Transmission Date: 20150721
  Serious: Yes (Hospitalization, Other)
  Sender: FDA-Public Use
  Company Number: FR-ROCHE-1265529

PATIENT
  Sex: Male
  Weight: 72 kg

DRUGS (21)
  1. LEXOMIL [Suspect]
     Active Substance: BROMAZEPAM
     Indication: PRODUCT USED FOR UNKNOWN INDICATION
     Dosage: 1/2  TABLET AT LUNCHTIME AND 1 TABLET IN THE EVENING
     Route: 065
     Dates: start: 2005
  2. LEXOMIL [Suspect]
     Active Substance: BROMAZEPAM
     Route: 065
     Dates: start: 20060423
  3. LEXOMIL [Suspect]
     Active Substance: BROMAZEPAM
     Route: 065
     Dates: start: 20070208
  4. VASTAREL [Suspect]
     Active Substance: TRIMETAZIDINE DIHYDROCHLORIDE
     Indication: PRODUCT USED FOR UNKNOWN INDICATION
     Dosage: VASTAREL 35 MG TABLET (1 TABLET IN THE MORNING AND 1 TABLET IN THE EVENING
     Route: 065
     Dates: start: 20050910, end: 2006
  5. TETRAZEPAM [Suspect]
     Active Substance: TETRAZEPAM
     Indication: PAIN
     Route: 065
     Dates: start: 20070411
  6. RIVOTRIL [Suspect]
     Active Substance: CLONAZEPAM
     Dosage: 2G AT BEDTIME
     Route: 065
     Dates: start: 20090915
  7. DI-ANTALVIC [Suspect]
     Active Substance: ACETAMINOPHEN\PROPOXYPHENE HYDROCHLORIDE
     Route: 065
     Dates: start: 20050412
  8. STILNOX [Concomitant]
     Active Substance: ZOLPIDEM TARTRATE
     Route: 065
     Dates: start: 20070628
  9. PIRACETAM [Concomitant]
     Active Substance: PIRACETAM
     Route: 065
     Dates: start: 2006, end: 2007
  10. SEROPRAM [Concomitant]
     Active Substance: CITALOPRAM HYDROBROMIDE
     Route: 065
     Dates: start: 2006, end: 2007
  11. DI-ANTALVIC [Suspect]
     Active Substance: ACETAMINOPHEN\PROPOXYPHENE HYDROCHLORIDE
     Indication: PRODUCT USED FOR UNKNOWN INDICATION
     Route: 065
     Dates: start: 20050407
  12. STILNOX [Concomitant]
     Active Substance: ZOLPIDEM TARTRATE
     Route: 065
     Dates: start: 20061116
  13. LEXOMIL [Suspect]
     Active Substance: BROMAZEPAM
     Route: 065
     Dates: start: 20061016
  14. LEXOMIL [Suspect]
     Active Substance: BROMAZEPAM
     Route: 065
     Dates: start: 20070628
  15. LEXOMIL [Suspect]
     Active Substance: BROMAZEPAM
     Route: 065
     Dates: start: 20071004
  16. RIVOTRIL [Suspect]
     Active Substance: CLONAZEPAM
     Indication: PAIN
     Dosage: 2G AT BEDTIME
     Route: 065
     Dates: start: 20090616, end: 20090915
  17. LEXOMIL [Suspect]
     Active Substance: BROMAZEPAM
     Route: 065
     Dates: start: 20060403
  18. STILNOX [Concomitant]
     Active Substance: ZOLPIDEM TARTRATE
     Route: 065
     Dates: start: 20070208
  19. LEXOMIL [Suspect]
     Active Substance: BROMAZEPAM
     Route: 065
     Dates: start: 20061116
  20. LYRICA [Suspect]
     Active Substance: PREGABALIN
     Indication: NEURALGIA
     Dosage: (FREQUENCY: 50 MG IN THE MORNING AND 50 MG AT LUNCHTILE FOR 8 DAYS THEN 75 MG IN THE MORNING AND 75
     Route: 065
     Dates: start: 20091119, end: 20100512
  21. STILNOX [Concomitant]
     Active Substance: ZOLPIDEM TARTRATE
     Route: 065
     Dates: start: 20071004

REACTIONS (10)
  - Visual acuity reduced [Unknown]
  - Loss of consciousness [Unknown]
  - Headache [Unknown]
  - Gastritis [Unknown]
  - Sleep apnoea syndrome [Unknown]
  - Polyneuropathy [Not Recovered/Not Resolved]
  - Hypersensitivity [Unknown]
  - Asthenia [Unknown]
  - Altered state of consciousness [Unknown]
  - Irritability [Unknown]

NARRATIVE: CASE EVENT DATE: 200504
